FAERS Safety Report 7039132-0 (Version None)
Quarter: 2010Q3

REPORT INFORMATION
  Report Type: 
  Country: None (occurrence: None)
  Receive Date: 20100927
  Receipt Date: 20100825
  Transmission Date: 20110219
  Serious: Yes (Other)
  Sender: FDA-Public Use
  Company Number: US-WYE-H17151910

PATIENT
  Sex: Male

DRUGS (2)
  1. TORISEL [Suspect]
     Indication: MANTLE CELL LYMPHOMA
     Dosage: ^UNKNOWN DOSE^ ; ^UNKNOWN DOSE^
     Dates: start: 20100804, end: 20100804
  2. TORISEL [Suspect]
     Indication: MANTLE CELL LYMPHOMA
     Dosage: ^UNKNOWN DOSE^ ; ^UNKNOWN DOSE^
     Dates: start: 20100818, end: 20100818

REACTIONS (1)
  - FULL BLOOD COUNT DECREASED [None]
